FAERS Safety Report 19484995 (Version 1)
Quarter: 2021Q3

REPORT INFORMATION
  Report Type: Spontaneous
  Country: US (occurrence: US)
  Receive Date: 20210702
  Receipt Date: 20210702
  Transmission Date: 20211014
  Serious: Yes (Other)
  Sender: FDA-Public Use
  Company Number: US-SPECGX-T202101566

PATIENT
  Age: 33 Year
  Sex: Female

DRUGS (1)
  1. HYDROMORPHONE [Suspect]
     Active Substance: HYDROMORPHONE
     Indication: PRODUCT USED FOR UNKNOWN INDICATION
     Dosage: INJECTING CRUSHED HYDROMORPHONE PILLS MULTIPLE TIMES PER DAY
     Route: 065

REACTIONS (5)
  - Silicon granuloma [Unknown]
  - Pulmonary arterial hypertension [Recovering/Resolving]
  - Drug abuse [Unknown]
  - Product use issue [Unknown]
  - Pneumonia [Unknown]
